FAERS Safety Report 6751284-6 (Version None)
Quarter: 2010Q2

REPORT INFORMATION
  Report Type: 
  Country: None (occurrence: None)
  Receive Date: 20100602
  Receipt Date: 20100518
  Transmission Date: 20101027
  Serious: Yes (Other)
  Sender: FDA-Public Use
  Company Number: PHEH2007US04858

PATIENT
  Sex: Female

DRUGS (6)
  1. AREDIA [Suspect]
     Indication: BONE DENSITY DECREASED
     Dosage: UNK, QMO
  2. ZOMETA [Suspect]
     Indication: RESORPTION BONE INCREASED
     Dosage: UNK, QMO
  3. CHEMOTHERAPEUTICS NOS [Concomitant]
  4. LEVOXYL [Concomitant]
  5. DILTIAZEM [Concomitant]
  6. TRIMETHOPRIM [Concomitant]

REACTIONS (16)
  - ANXIETY [None]
  - BACK PAIN [None]
  - BONE DISORDER [None]
  - CHOLELITHIASIS [None]
  - DEBRIDEMENT [None]
  - HAEMANGIOMA [None]
  - INTERVERTEBRAL DISC DEGENERATION [None]
  - LYMPHADENOPATHY [None]
  - METASTASES TO BONE [None]
  - OSTEOMYELITIS [None]
  - OSTEONECROSIS OF JAW [None]
  - PAIN [None]
  - PERIODONTITIS [None]
  - PRIMARY SEQUESTRUM [None]
  - SWELLING [None]
  - TOOTH EXTRACTION [None]
